FAERS Safety Report 14762931 (Version 1)
Quarter: 2018Q2

REPORT INFORMATION
  Report Type: Spontaneous
  Country: GB (occurrence: GB)
  Receive Date: 20180416
  Receipt Date: 20180416
  Transmission Date: 20180711
  Serious: Yes (Disabling, Other)
  Sender: FDA-Public Use
  Company Number: GB-SUN PHARMACEUTICAL INDUSTRIES LTD-2018RR-169979

PATIENT
  Age: 28 Year
  Sex: Female

DRUGS (3)
  1. CEFALEXIN [Concomitant]
     Active Substance: CEPHALEXIN
     Indication: URINARY TRACT INFECTION
     Dosage: ()
     Route: 065
  2. CYCLIZINE HYDROCHLORIDE [Concomitant]
     Active Substance: CYCLIZINE HYDROCHLORIDE
     Indication: PRODUCT USED FOR UNKNOWN INDICATION
     Dosage: ()
     Route: 065
  3. DIHYDROCODEINE [Suspect]
     Active Substance: DIHYDROCODEINE
     Indication: SYMPHYSIOLYSIS
     Dosage: ABOUT THREE TIMES SINCE IT WAS PRESCRIBED. ; AS NECESSARY
     Route: 048
     Dates: start: 20180308, end: 20180317

REACTIONS (5)
  - Muscle twitching [Recovering/Resolving]
  - Nausea [Not Recovered/Not Resolved]
  - Chills [Recovering/Resolving]
  - Cardiac flutter [Recovered/Resolved]
  - Somnolence [Not Recovered/Not Resolved]

NARRATIVE: CASE EVENT DATE: 20180308
